FAERS Safety Report 8840722 (Version 1)
Quarter: 2012Q4

REPORT INFORMATION
  Report Type: 
  Country: SE (occurrence: SE)
  Receive Date: 20121015
  Receipt Date: 20121015
  Transmission Date: 20130627
  Serious: Yes (Other)
  Sender: FDA-Public Use
  Company Number: SE-PFIZER INC-2012250553

PATIENT
  Age: 49 Year
  Sex: Male
  Weight: 44 kg

DRUGS (6)
  1. MORPHINE SULFATE [Suspect]
     Indication: ANALGESIC THERAPY
     Dosage: 0.4mg/2ml
     Route: 037
  2. MORPHINE SULFATE [Suspect]
     Dosage: 2mg/ml
     Route: 037
  3. MORPHINE SULFATE [Suspect]
     Dosage: 4.5 mg/day  the first day
     Route: 037
  4. MORPHINE SULFATE [Suspect]
     Dosage: 6 mg/day at 2 months
     Route: 037
  5. MORPHINE SULFATE [Suspect]
     Dosage: 9 mg/day at 3 months
     Route: 037
  6. MORPHINE SULFATE [Suspect]
     Dosage: 20 mg/day at 4 months
     Route: 037

REACTIONS (6)
  - Respiratory failure [Recovered/Resolved]
  - Loss of consciousness [Unknown]
  - Drug effect decreased [Unknown]
  - Nausea [Unknown]
  - Vertigo [Unknown]
  - Vomiting [Unknown]
